FAERS Safety Report 12100837 (Version 1)
Quarter: 2016Q1

REPORT INFORMATION
  Report Type: Spontaneous
  Country: BR (occurrence: BR)
  Receive Date: 20160222
  Receipt Date: 20160222
  Transmission Date: 20160526
  Serious: Yes (Death)
  Sender: FDA-Public Use
  Company Number: BR-AMGEN-BRASP2014044637

PATIENT
  Age: 65 Year
  Sex: Female
  Weight: 62 kg

DRUGS (7)
  1. NUTRICALCIO D [Concomitant]
     Dosage: 2 TABLETS, TWICE DAILY
     Route: 048
  2. PREDNISONE. [Concomitant]
     Active Substance: PREDNISONE
     Dosage: UNK
  3. DEPURA [Concomitant]
     Active Substance: CHOLECALCIFEROL
     Dosage: STRENGTH 20ML, AT 7 DROPS ONCE DAILY
     Route: 048
  4. ENBREL [Suspect]
     Active Substance: ETANERCEPT
     Indication: RHEUMATOID ARTHRITIS
     Dosage: 50 MG, ONCE A WEEK
     Route: 058
     Dates: start: 201208
  5. PRELONE [Concomitant]
     Active Substance: PREDNISOLONE
     Dosage: STRENGTH 20MG, ALTERNATE DAYS
  6. PRELONE [Concomitant]
     Active Substance: PREDNISOLONE
     Dosage: STRENGTH 20MG, ALTERNATE DAYS (Y/N)
  7. METHOTREXATE [Concomitant]
     Active Substance: METHOTREXATE
     Dosage: 7 TABLETS OF 2.5MG (17.5 MG) WEEKLY
     Route: 048

REACTIONS (5)
  - Pain in extremity [Unknown]
  - Foot deformity [Unknown]
  - Death [Fatal]
  - Rhinitis allergic [Unknown]
  - Drug ineffective [Unknown]

NARRATIVE: CASE EVENT DATE: 201402
